FAERS Safety Report 18753517 (Version 1)
Quarter: 2021Q1

REPORT INFORMATION
  Report Type: Spontaneous
  Country: US (occurrence: US)
  Receive Date: 20210118
  Receipt Date: 20210118
  Transmission Date: 20210419
  Serious: Yes (Other)
  Sender: FDA-Public Use
  Company Number: US-PURDUE-USA-2021-0198602

PATIENT
  Age: 34 Year
  Sex: Male

DRUGS (3)
  1. OXYCODONE HYDROCHLORIDE. [Suspect]
     Active Substance: OXYCODONE HYDROCHLORIDE
     Dosage: 5 MG, DAILY (HIS LAST PRESCRIPTION OPIATE USE CONFIRMED THROUGH REVIEW OF THE STATE PRESCRIBING...)
     Route: 065
  2. OXYCODONE HYDROCHLORIDE. [Suspect]
     Active Substance: OXYCODONE HYDROCHLORIDE
     Indication: BACK PAIN
     Dosage: 1 UNIT, DAILY (HE RECEIVED OPIOIDS AT AN AVERAGE DOSE OF 50 MORPHINE MILLIGRAM EQUIVALENT (MME)...)
     Route: 065
  3. OXYCODONE HYDROCHLORIDE. [Suspect]
     Active Substance: OXYCODONE HYDROCHLORIDE
     Dosage: 1 UNIT, DAILY (90 MME DAILY)
     Route: 065

REACTIONS (3)
  - Adrenal insufficiency [Unknown]
  - Erectile dysfunction [Unknown]
  - Hypothalamic pituitary adrenal axis suppression [Unknown]
